FAERS Safety Report 13541467 (Version 1)
Quarter: 2017Q2

REPORT INFORMATION
  Report Type: Other
  Country: GB (occurrence: GB)
  Receive Date: 20170512
  Receipt Date: 20170512
  Transmission Date: 20170830
  Serious: Yes (Life-Threatening, Other)
  Sender: FDA-Public Use
  Company Number: GB-VERTEX PHARMACEUTICALS-2017-002466

PATIENT

DRUGS (9)
  1. AZITHROMYCIN ANHYDROUS. [Concomitant]
     Active Substance: AZITHROMYCIN ANHYDROUS
  2. CREON [Concomitant]
     Active Substance: PANCRELIPASE AMYLASE\PANCRELIPASE LIPASE\PANCRELIPASE PROTEASE
  3. MULTIVITAMIN [Concomitant]
     Active Substance: VITAMINS
  4. REPAGLINIDE. [Concomitant]
     Active Substance: REPAGLINIDE
  5. VITAMIN E SUBSTANCES [Concomitant]
  6. PARACETAMOL [Concomitant]
     Active Substance: ACETAMINOPHEN
  7. OMEPRAZOLE SODIUM [Concomitant]
     Active Substance: OMEPRAZOLE SODIUM
  8. KALYDECO [Suspect]
     Active Substance: IVACAFTOR
     Indication: CYSTIC FIBROSIS
     Dosage: 150 MG, BID
     Route: 048
     Dates: start: 20150516, end: 20170421
  9. COLISTIMETHATE SODIUM. [Concomitant]
     Active Substance: COLISTIMETHATE SODIUM

REACTIONS (2)
  - Pancreatic carcinoma [Not Recovered/Not Resolved]
  - Metastases to liver [Not Recovered/Not Resolved]

NARRATIVE: CASE EVENT DATE: 20170404
